FAERS Safety Report 16258117 (Version 5)
Quarter: 2023Q1

REPORT INFORMATION
  Report Type: Spontaneous
  Country: US (occurrence: None)
  Receive Date: 20190430
  Receipt Date: 20230227
  Transmission Date: 20230418
  Serious: Yes (Hospitalization, Other)
  Sender: FDA-Public Use
  Company Number: 2019SE09979

PATIENT
  Age: 23407 Day
  Sex: Male
  Weight: 94.8 kg

DRUGS (46)
  1. NEXIUM [Suspect]
     Active Substance: ESOMEPRAZOLE MAGNESIUM
     Indication: Gastrooesophageal reflux disease
     Dosage: FOR VARIOUS DATES AND YEARS PRIOR TO AND/OR INCLUDING THE DATES OF PLAINTIFF^S INJURY OR INJURIES
     Route: 048
  2. NEXIUM [Suspect]
     Active Substance: ESOMEPRAZOLE MAGNESIUM
     Indication: Gastrooesophageal reflux disease
     Dosage: DAILY
     Route: 048
     Dates: start: 2001, end: 2017
  3. NEXIUM [Suspect]
     Active Substance: ESOMEPRAZOLE MAGNESIUM
     Indication: Gastrooesophageal reflux disease
     Route: 048
     Dates: start: 2001, end: 2014
  4. NEXIUM [Suspect]
     Active Substance: ESOMEPRAZOLE MAGNESIUM
     Indication: Gastrooesophageal reflux disease
     Route: 048
     Dates: start: 20130619
  5. NEXIUM 24HR [Suspect]
     Active Substance: ESOMEPRAZOLE MAGNESIUM
     Indication: Gastrooesophageal reflux disease
     Route: 048
     Dates: start: 2014, end: 2017
  6. PRILOSEC [Suspect]
     Active Substance: OMEPRAZOLE MAGNESIUM
     Indication: Gastrooesophageal reflux disease
     Dosage: FOR VARIOUS DATES AND YEARS PRIOR TO AND/OR INCLUDING THE DATES OF PLAINTIFF^S INJURY OR INJURIES
     Route: 048
  7. PRILOSEC [Suspect]
     Active Substance: OMEPRAZOLE MAGNESIUM
     Indication: Gastrooesophageal reflux disease
     Route: 048
     Dates: start: 1999, end: 2017
  8. ATORVASTATIN CALCIUM [Concomitant]
     Active Substance: ATORVASTATIN CALCIUM
     Indication: Blood cholesterol increased
     Dates: start: 2016, end: 2017
  9. FUROSEMIDE [Concomitant]
     Active Substance: FUROSEMIDE
     Indication: Oedema
     Dates: start: 2016
  10. AZITHROMYCIN [Concomitant]
     Active Substance: AZITHROMYCIN
     Indication: Infection
     Dates: start: 2016
  11. AMOXICILLIN [Concomitant]
     Active Substance: AMOXICILLIN
     Indication: Infection
     Dates: start: 2017
  12. CARVEDILOL [Concomitant]
     Active Substance: CARVEDILOL
     Indication: Blood pressure measurement
     Dates: start: 2017
  13. TUMS [Concomitant]
     Active Substance: CALCIUM CARBONATE
  14. PEPCID [Concomitant]
     Active Substance: FAMOTIDINE
  15. ZANTAC [Concomitant]
     Active Substance: RANITIDINE HYDROCHLORIDE
  16. VITAMIN D2 [Concomitant]
     Active Substance: ERGOCALCIFEROL
     Indication: Nutritional supplementation
     Route: 065
     Dates: start: 2016
  17. CLINDAMYCIN HYDROCHLORIDE [Concomitant]
     Active Substance: CLINDAMYCIN HYDROCHLORIDE
     Indication: Infection
     Route: 065
     Dates: start: 2017
  18. CLOPIDOGREL BISULFATE [Concomitant]
     Active Substance: CLOPIDOGREL BISULFATE
     Indication: Anticoagulant therapy
     Route: 065
     Dates: start: 2017
  19. NITROGLC SI [Concomitant]
     Indication: Chest pain
     Route: 065
     Dates: start: 2017
  20. LANTUS [Concomitant]
     Active Substance: INSULIN GLARGINE
  21. NOVOLOG [Concomitant]
     Active Substance: INSULIN ASPART
  22. GABAPENTIN [Concomitant]
     Active Substance: GABAPENTIN
  23. ISOSORBIDE DINITRATE [Concomitant]
     Active Substance: ISOSORBIDE DINITRATE
  24. LOSARTAN POTASSIUM [Concomitant]
     Active Substance: LOSARTAN POTASSIUM
  25. OXYCODONE [Concomitant]
     Active Substance: OXYCODONE
  26. HYDRALAZINE HCL [Concomitant]
     Active Substance: HYDRALAZINE HYDROCHLORIDE
  27. LISINOPRIL [Concomitant]
     Active Substance: LISINOPRIL
  28. TORSEMIDE [Concomitant]
     Active Substance: TORSEMIDE
  29. FENOFIBRATE [Concomitant]
     Active Substance: FENOFIBRATE
  30. BUPROPION [Concomitant]
     Active Substance: BUPROPION
  31. AMITRIPTYLINE [Concomitant]
     Active Substance: AMITRIPTYLINE
  32. TAMSULOSIN [Concomitant]
     Active Substance: TAMSULOSIN
  33. ULTRAM [Concomitant]
     Active Substance: TRAMADOL HYDROCHLORIDE
  34. TRAMADOL [Concomitant]
     Active Substance: TRAMADOL
  35. MORPHINE [Concomitant]
     Active Substance: MORPHINE
  36. ISOSORBIDE MONONITRATE [Concomitant]
     Active Substance: ISOSORBIDE MONONITRATE
  37. POTASSIUM [Concomitant]
     Active Substance: POTASSIUM
  38. PERCOCET [Concomitant]
     Active Substance: ACETAMINOPHEN\OXYCODONE HYDROCHLORIDE
  39. DEXTROSE [Concomitant]
     Active Substance: DEXTROSE
  40. VANCOMYCIN [Concomitant]
     Active Substance: VANCOMYCIN
  41. GLUCAGON [Concomitant]
     Active Substance: GLUCAGON
  42. HYDROMORPHONE [Concomitant]
     Active Substance: HYDROMORPHONE
  43. ONDANSETRON [Concomitant]
     Active Substance: ONDANSETRON
  44. TAZOBACTAM [Concomitant]
     Active Substance: TAZOBACTAM
  45. DOCUSATE [Concomitant]
     Active Substance: DOCUSATE
  46. HEPARIN [Concomitant]
     Active Substance: HEPARIN SODIUM

REACTIONS (7)
  - Chronic kidney disease [Not Recovered/Not Resolved]
  - Acute kidney injury [Not Recovered/Not Resolved]
  - Renal failure [Not Recovered/Not Resolved]
  - Renal injury [Unknown]
  - Nephrogenic anaemia [Unknown]
  - Chronic kidney disease-mineral and bone disorder [Unknown]
  - Rebound acid hypersecretion [Unknown]

NARRATIVE: CASE EVENT DATE: 20130914
